FAERS Safety Report 4981187-9 (Version None)
Quarter: 2006Q2

REPORT INFORMATION
  Report Type: 
  Country: None (occurrence: None)
  Receive Date: 20060418
  Receipt Date: 20060410
  Transmission Date: 20061013
  Serious: Yes (Hospitalization)
  Sender: FDA-Public Use
  Company Number: S06-USA-01459-01

PATIENT
  Age: 77 Year

DRUGS (1)
  1. LEXAPRO [Suspect]
     Dates: end: 20060101

REACTIONS (1)
  - ELECTROCARDIOGRAM QT PROLONGED [None]
